FAERS Safety Report 20933158 (Version 2)
Quarter: 2022Q3

REPORT INFORMATION
  Report Type: Spontaneous
  Country: US (occurrence: None)
  Receive Date: 20220608
  Receipt Date: 20220714
  Transmission Date: 20221026
  Serious: Yes (Other)
  Sender: FDA-Public Use
  Company Number: 2022A205820

PATIENT
  Age: 49 Year
  Sex: Female

DRUGS (3)
  1. EVUSHELD [Suspect]
     Active Substance: CILGAVIMAB\TIXAGEVIMAB
     Dosage: DOSE 1 OF TIXAGEVIMAB
     Route: 030
     Dates: start: 20220225
  2. EVUSHELD [Suspect]
     Active Substance: CILGAVIMAB\TIXAGEVIMAB
     Dosage: DOSE 2 OF CILGAVIMAB
     Route: 030
     Dates: start: 20220304
  3. COVID -19 VACCINE [Concomitant]

REACTIONS (2)
  - Cardiac disorder [Recovered/Resolved]
  - Chest discomfort [Recovered/Resolved]

NARRATIVE: CASE EVENT DATE: 20220226
